FAERS Safety Report 11010612 (Version 2)
Quarter: 2015Q2

REPORT INFORMATION
  Report Type: Spontaneous
  Country: GB (occurrence: GB)
  Receive Date: 20150410
  Receipt Date: 20150413
  Transmission Date: 20150821
  Serious: Yes (Disabling, Other)
  Sender: FDA-Public Use
  Company Number: GB-PFIZER INC-2015123510

PATIENT
  Age: 30 Year
  Sex: Male
  Weight: 100 kg

DRUGS (3)
  1. COCODAMOL [Concomitant]
     Active Substance: ACETAMINOPHEN\CODEINE PHOSPHATE
     Indication: ARTHRALGIA
     Dosage: UNK
  2. PREGABALIN. [Suspect]
     Active Substance: PREGABALIN
     Indication: HEADACHE
     Dosage: 75 MG, 2X/DAY
     Route: 048
     Dates: start: 20130802, end: 20130818
  3. PROPRANOLOL HYDROCHLORIDE. [Concomitant]
     Active Substance: PROPRANOLOL HYDROCHLORIDE
     Dosage: NO LONGER TAKING

REACTIONS (3)
  - Eyelid function disorder [Not Recovered/Not Resolved]
  - Facial spasm [Not Recovered/Not Resolved]
  - Blepharospasm [Not Recovered/Not Resolved]

NARRATIVE: CASE EVENT DATE: 201308
